FAERS Safety Report 4680343-7 (Version None)
Quarter: 2005Q2

REPORT INFORMATION
  Report Type: 
  Country: None (occurrence: None)
  Receive Date: 20050601
  Receipt Date: 20050523
  Transmission Date: 20051028
  Serious: Yes (Life-Threatening, Hospitalization)
  Sender: FDA-Public Use
  Company Number: 1515-093

PATIENT
  Age: 65 Year
  Sex: Female

DRUGS (6)
  1. VENOFER [Suspect]
     Indication: NEPHROGENIC ANAEMIA
     Dosage: 100MG IV
     Route: 042
     Dates: start: 20050322, end: 20050408
  2. VIFOR INTERNATIONAL INC. [Suspect]
  3. CARVEDILOL [Concomitant]
  4. VITAMIN B COMPLEX CAP [Concomitant]
  5. ASCORBIC ACID [Concomitant]
  6. FOLIC ACID [Concomitant]

REACTIONS (3)
  - CONDITION AGGRAVATED [None]
  - HEPATIC FAILURE [None]
  - SERUM FERRITIN INCREASED [None]
